FAERS Safety Report 8461543-7 (Version None)
Quarter: 2012Q2

REPORT INFORMATION
  Report Type: 
  Country: None (occurrence: None)
  Receive Date: 20120625
  Receipt Date: 20120622
  Transmission Date: 20120825
  Serious: Yes (Death, Life-Threatening, Hospitalization)
  Sender: FDA-Public Use
  Company Number: DE-B.I. PHARMACEUTICALS,INC./RIDGEFIELD-2012-DE-01059DE

PATIENT
  Sex: Female

DRUGS (3)
  1. PRADAXA [Suspect]
     Indication: ATRIAL FIBRILLATION
  2. PRADAXA [Suspect]
  3. PRADAXA [Suspect]
     Indication: CARDIAC PACEMAKER INSERTION
     Dosage: 220 MG
     Dates: start: 20120312, end: 20120331

REACTIONS (4)
  - GASTROINTESTINAL HAEMORRHAGE [None]
  - GASTRITIS EROSIVE [None]
  - CARDIAC TAMPONADE [None]
  - DEATH [None]
